FAERS Safety Report 13395870 (Version 1)
Quarter: 2017Q2

REPORT INFORMATION
  Report Type: Report from Study
  Country: US (occurrence: US)
  Receive Date: 20170403
  Receipt Date: 20170403
  Transmission Date: 20170830
  Serious: Yes (Other)
  Sender: FDA-Public Use
  Company Number: US-VIIV HEALTHCARE LIMITED-US2017GSK046453

PATIENT
  Age: 33 Year
  Sex: Female

DRUGS (5)
  1. NORVIR [Suspect]
     Active Substance: RITONAVIR
     Indication: HIV INFECTION
     Dosage: 100 MG/DAY ORALLY
     Route: 048
     Dates: start: 20170323
  2. ZIDOVUDINE. [Suspect]
     Active Substance: ZIDOVUDINE
     Indication: HIV INFECTION
     Dosage: 2 MG/KG/HR
     Route: 042
     Dates: start: 20170328, end: 20170328
  3. ZIDOVUDINE. [Suspect]
     Active Substance: ZIDOVUDINE
     Dosage: 1 MG/KG/HR
     Route: 042
     Dates: start: 20170328, end: 20170328
  4. TRUVADA [Suspect]
     Active Substance: EMTRICITABINE\TENOFOVIR DISOPROXIL FUMARATE
     Indication: HIV INFECTION
     Dosage: 1 TAB/CAPS DAILY ORALLY
     Route: 048
     Dates: start: 20170323
  5. REYATAZ [Suspect]
     Active Substance: ATAZANAVIR SULFATE
     Indication: HIV INFECTION
     Dosage: 300 MG/DAY ORALLY
     Route: 048
     Dates: start: 20170323

REACTIONS (5)
  - Pneumocystis jirovecii pneumonia [Unknown]
  - Live birth [Unknown]
  - Mechanical ventilation [Unknown]
  - Premature delivery [Unknown]
  - Exposure during pregnancy [Unknown]

NARRATIVE: CASE EVENT DATE: 20170328
